FAERS Safety Report 9106968 (Version 1)
Quarter: 2013Q1

REPORT INFORMATION
  Report Type: Spontaneous
  Country: US (occurrence: US)
  Receive Date: 20130221
  Receipt Date: 20130221
  Transmission Date: 20140127
  Serious: Yes (Other)
  Sender: FDA-Public Use
  Company Number: US-BAXTER-2013BAX006017

PATIENT
  Age: 78 Year
  Sex: Female

DRUGS (2)
  1. METRONIDAZOLE [Suspect]
     Indication: CLOSTRIDIUM DIFFICILE INFECTION
     Route: 042
  2. VANCOMYCIN [Suspect]
     Indication: CLOSTRIDIUM DIFFICILE INFECTION
     Route: 048

REACTIONS (1)
  - Drug ineffective [Recovered/Resolved]
